FAERS Safety Report 8999040 (Version 1)
Quarter: 2013Q1

REPORT INFORMATION
  Report Type: Spontaneous
  Country: US (occurrence: US)
  Receive Date: 20130103
  Receipt Date: 20130103
  Transmission Date: 20140127
  Serious: Yes (Other)
  Sender: FDA-Public Use
  Company Number: US-BAYER-2012-111683

PATIENT
  Age: 38 Year
  Sex: Female
  Weight: 64.4 kg

DRUGS (2)
  1. MIRENA [Suspect]
     Indication: CONTRACEPTION
     Dosage: 20 MCG/24HR, CONT
     Route: 015
     Dates: start: 20120730, end: 20120806
  2. MIRENA [Suspect]
     Indication: MENOMETRORRHAGIA

REACTIONS (4)
  - Genital haemorrhage [Recovering/Resolving]
  - Device expulsion [None]
  - Abdominal pain lower [None]
  - Pain [Recovering/Resolving]
